FAERS Safety Report 8602780-8 (Version None)
Quarter: 2012Q3

REPORT INFORMATION
  Report Type: 
  Country: None (occurrence: None)
  Receive Date: 20120817
  Receipt Date: 20120808
  Transmission Date: 20120928
  Serious: Yes (Other)
  Sender: FDA-Public Use
  Company Number: JP-JNJFOC-20120705803

PATIENT
  Sex: Female
  Weight: 51 kg

DRUGS (11)
  1. REMICADE [Suspect]
     Dosage: 4TH DOSE
     Route: 042
  2. REMICADE [Suspect]
     Indication: CROHN'S DISEASE
     Route: 042
     Dates: start: 20110311
  3. REMICADE [Suspect]
     Dosage: 5TH DOSE
     Route: 042
     Dates: start: 20101217
  4. BIO THREE [Concomitant]
     Route: 048
     Dates: start: 20100917
  5. UNKNOWN ADRENAL HORMONE PREPARATIONS [Suspect]
     Indication: CROHN'S DISEASE
     Route: 048
  6. PENTASA [Concomitant]
     Route: 048
     Dates: start: 20100423
  7. REMICADE [Suspect]
     Dosage: FIRST DOSE
     Route: 042
     Dates: start: 20100716
  8. HUMIRA [Suspect]
     Indication: PRODUCT USED FOR UNKNOWN INDICATION
     Route: 065
     Dates: start: 20110422, end: 20110715
  9. ONEALFA [Concomitant]
     Route: 048
  10. REMICADE [Suspect]
     Route: 042
     Dates: start: 20110128
  11. ISOCOTIN [Concomitant]
     Route: 048
     Dates: start: 20100917

REACTIONS (1)
  - PYODERMA GANGRENOSUM [None]
